FAERS Safety Report 21859408 (Version 1)
Quarter: 2023Q1

REPORT INFORMATION
  Report Type: Spontaneous
  Country: US (occurrence: US)
  Receive Date: 20230113
  Receipt Date: 20230113
  Transmission Date: 20230418
  Serious: Yes (Death, Hospitalization)
  Sender: FDA-Public Use
  Company Number: US-BAYER-2023A003635

PATIENT
  Age: 51 Year
  Sex: Female

DRUGS (3)
  1. NAPROXEN SODIUM [Suspect]
     Active Substance: NAPROXEN SODIUM
     Route: 048
  2. ACETAMINOPHEN [Suspect]
     Active Substance: ACETAMINOPHEN
     Route: 048
  3. DIPHENHYDRAMINE CITRATE\IBUPROFEN [Suspect]
     Active Substance: DIPHENHYDRAMINE CITRATE\IBUPROFEN
     Route: 048

REACTIONS (1)
  - Toxicity to various agents [Fatal]
